FAERS Safety Report 4630525-5 (Version None)
Quarter: 2005Q2

REPORT INFORMATION
  Report Type: 
  Country: None (occurrence: None)
  Receive Date: 20050408
  Receipt Date: 20050207
  Transmission Date: 20051028
  Serious: Yes (Hospitalization)
  Sender: FDA-Public Use
  Company Number: US-GLAXOSMITHKLINE-A0544277A

PATIENT
  Age: 69 Year
  Sex: Female
  Weight: 62.3 kg

DRUGS (11)
  1. TAGAMET [Suspect]
     Indication: DYSPEPSIA
     Dosage: 200MG TWICE PER DAY
     Route: 048
     Dates: start: 20041201, end: 20050208
  2. ADVAIR DISKUS 100/50 [Suspect]
     Indication: CHRONIC OBSTRUCTIVE PULMONARY DISEASE
     Dosage: 1PUFF TWICE PER DAY
     Route: 055
     Dates: start: 20030101
  3. LITHIUM [Concomitant]
  4. EFFEXOR [Concomitant]
  5. ZYPREXA [Concomitant]
  6. PROMETRIUM [Concomitant]
  7. PREMARIN [Concomitant]
  8. NORVASC [Concomitant]
  9. LEVOTHYROXINE SODIUM [Concomitant]
  10. PROTONIX [Concomitant]
  11. FUROSEMIDE [Concomitant]

REACTIONS (11)
  - ARTHRALGIA [None]
  - ASTHENIA [None]
  - BLOOD CREATININE INCREASED [None]
  - CANDIDIASIS [None]
  - FATIGUE [None]
  - LARYNGITIS [None]
  - MYALGIA [None]
  - NEPHRITIS INTERSTITIAL [None]
  - PYURIA [None]
  - RENAL FAILURE ACUTE [None]
  - TREMOR [None]
